FAERS Safety Report 7334848-0 (Version None)
Quarter: 2011Q1

REPORT INFORMATION
  Report Type: 
  Country: None (occurrence: None)
  Receive Date: 20110307
  Receipt Date: 20110301
  Transmission Date: 20110831
  Serious: Yes (Other)
  Sender: FDA-Public Use
  Company Number: TN-ROXANE LABORATORIES, INC.-2011-RO-00238RO

PATIENT
  Age: 35 Year
  Sex: Female

DRUGS (5)
  1. METHOTREXATE [Suspect]
     Indication: ACUTE LYMPHOCYTIC LEUKAEMIA
  2. FOLINIC ACID [Suspect]
     Indication: PROPHYLAXIS
  3. AMPHOTERICIN B [Suspect]
     Dates: start: 20090216, end: 20090217
  4. SODIUM BICARBONATE [Suspect]
     Indication: PROPHYLAXIS
  5. AMPHOTERICIN B [Suspect]
     Indication: FUNGAL INFECTION
     Dates: start: 20090215, end: 20090215

REACTIONS (5)
  - HYPOKALAEMIA [None]
  - TOXICITY TO VARIOUS AGENTS [None]
  - HYPERURICAEMIA [None]
  - RENAL IMPAIRMENT [None]
  - HYPONATRAEMIA [None]
